FAERS Safety Report 5599294-9 (Version None)
Quarter: 2008Q1

REPORT INFORMATION
  Report Type: 
  Country: None (occurrence: None)
  Receive Date: 20080117
  Receipt Date: 20080104
  Transmission Date: 20080703
  Serious: Yes (Other)
  Sender: FDA-Public Use
  Company Number: B0502479A

PATIENT
  Age: 52 Year
  Sex: Male

DRUGS (3)
  1. LAMIVUDINE [Suspect]
     Indication: KAPOSI'S SARCOMA AIDS RELATED
     Dosage: ORAL
     Route: 048
  2. EFAVIRENZ [Suspect]
     Indication: KAPOSI'S SARCOMA AIDS RELATED
     Dosage: ORAL
     Route: 048
  3. STAVUDINE [Suspect]
     Indication: KAPOSI'S SARCOMA AIDS RELATED
     Dosage: ORAL
     Route: 048

REACTIONS (3)
  - IMMUNE RECONSTITUTION SYNDROME [None]
  - KAPOSI'S SARCOMA [None]
  - MALIGNANT NEOPLASM PROGRESSION [None]
